FAERS Safety Report 16788748 (Version 1)
Quarter: 2019Q3

REPORT INFORMATION
  Report Type: Spontaneous
  Country: RS (occurrence: RS)
  Receive Date: 20190910
  Receipt Date: 20190910
  Transmission Date: 20191005
  Serious: Yes (Life-Threatening)
  Sender: FDA-Public Use
  Company Number: RS-ABBVIE-19K-303-2915519-00

PATIENT
  Age: 13 Year
  Sex: Male
  Weight: 37 kg

DRUGS (5)
  1. SEVORANE [Suspect]
     Active Substance: SEVOFLURANE
     Indication: ANAESTHESIA
     Dosage: ACCORDING TO PATIENT AGE
     Route: 055
     Dates: start: 20190808, end: 20190808
  2. DORMICUM [Concomitant]
     Indication: SEDATION
     Dosage: 0.05-0.1 MG/KG
     Dates: start: 20190808, end: 20190808
  3. ATROPIN [Concomitant]
     Active Substance: ATROPINE
     Indication: PREMEDICATION
     Route: 042
     Dates: start: 20190808, end: 20190808
  4. PROPOFOL. [Concomitant]
     Active Substance: PROPOFOL
     Indication: PRODUCT USED FOR UNKNOWN INDICATION
     Dosage: 1-5 MCG/KG
     Dates: start: 20190808, end: 20190808
  5. FENTANYL. [Concomitant]
     Active Substance: FENTANYL
     Indication: ANALGESIC THERAPY
     Dosage: 1-5 MCG/KG
     Route: 042
     Dates: start: 20190808, end: 20190808

REACTIONS (3)
  - Blood pressure decreased [Unknown]
  - Anaphylactic shock [Recovered/Resolved]
  - Hypoventilation [Unknown]

NARRATIVE: CASE EVENT DATE: 20190808
